FAERS Safety Report 10211035 (Version 1)
Quarter: 2014Q2

REPORT INFORMATION
  Report Type: Spontaneous
  Country: US (occurrence: None)
  Receive Date: 20140528
  Receipt Date: 20140528
  Transmission Date: 20141212
  Serious: Yes (Hospitalization, Other)
  Sender: FDA-Public Use
  Company Number: UNT-2014-000570

PATIENT
  Sex: Female

DRUGS (2)
  1. REMODULIN [Suspect]
     Indication: PULMONARY ARTERIAL HYPERTENSION
     Dosage: UNK, UNK
     Route: 042
  2. TRACLEER (BOSENTAN) [Concomitant]

REACTIONS (10)
  - Device dislocation [None]
  - Fatigue [None]
  - Dyspnoea [None]
  - Abdominal distension [None]
  - Pain in extremity [None]
  - Headache [None]
  - Flushing [None]
  - Dysstasia [None]
  - Activities of daily living impaired [None]
  - Impaired work ability [None]
